FAERS Safety Report 21636679 (Version 2)
Quarter: 2023Q1

REPORT INFORMATION
  Report Type: Spontaneous
  Country: US (occurrence: US)
  Receive Date: 20221124
  Receipt Date: 20230206
  Transmission Date: 20230418
  Serious: Yes (Hospitalization)
  Sender: FDA-Public Use
  Company Number: US-JNJFOC-20221149563

PATIENT
  Age: 79 Year
  Sex: Male
  Weight: 81.720 kg

DRUGS (5)
  1. DARZALEX FASPRO [Suspect]
     Active Substance: DARATUMUMAB\HYALURONIDASE-FIHJ
     Indication: Plasma cell myeloma
     Dosage: LAST INTAKE WAS ON 25-OCT-2022
     Route: 058
     Dates: start: 20210706
  2. DECADRON [Suspect]
     Active Substance: DEXAMETHASONE
     Indication: Product used for unknown indication
     Dosage: COMPLETED COURSE
     Route: 048
     Dates: start: 20151109, end: 20160301
  3. REVLIMID [Suspect]
     Active Substance: LENALIDOMIDE
     Indication: Product used for unknown indication
     Dosage: COMPLETED THE COURSE, EVERY OTHER DAY FOR 30 DAYS, 8 DAYS OFF
     Route: 048
     Dates: start: 20151110, end: 20160301
  4. REVLIMID [Suspect]
     Active Substance: LENALIDOMIDE
     Dosage: 21 DAYS ON, 7 DAYS OFF
     Route: 048
     Dates: start: 20210706
  5. VELCADE [Suspect]
     Active Substance: BORTEZOMIB
     Indication: Product used for unknown indication
     Dosage: NO REST PERIOD DAY 1 Q 7 D
     Route: 058
     Dates: start: 20151110, end: 20160216

REACTIONS (2)
  - Nephrogenic anaemia [Recovered/Resolved]
  - Toxicity to various agents [Unknown]

NARRATIVE: CASE EVENT DATE: 20220917
